FAERS Safety Report 13599269 (Version 1)
Quarter: 2017Q2

REPORT INFORMATION
  Report Type: Spontaneous
  Country: DE (occurrence: DE)
  Receive Date: 20170531
  Receipt Date: 20170531
  Transmission Date: 20170830
  Serious: Yes (Hospitalization)
  Sender: FDA-Public Use
  Company Number: DE-SA-2017SA026769

PATIENT
  Age: 50 Year
  Sex: Male

DRUGS (4)
  1. ZALTRAP [Suspect]
     Active Substance: ZIV-AFLIBERCEPT
     Indication: COLON CANCER
     Dosage: 25 MG/ML CONCENTRATE FOR INFUSION
     Route: 042
  2. LEUCOVORIN. [Concomitant]
     Active Substance: LEUCOVORIN
     Route: 065
  3. IRINOTECAN [Concomitant]
     Active Substance: IRINOTECAN
     Route: 065
  4. FU [Concomitant]
     Active Substance: FLUOROURACIL
     Route: 065

REACTIONS (2)
  - Pustular psoriasis [Not Recovered/Not Resolved]
  - Psoriasis [Not Recovered/Not Resolved]

NARRATIVE: CASE EVENT DATE: 201701
